FAERS Safety Report 19032597 (Version 1)
Quarter: 2021Q1

REPORT INFORMATION
  Report Type: Spontaneous
  Country: CA (occurrence: CA)
  Receive Date: 20210319
  Receipt Date: 20210319
  Transmission Date: 20210420
  Serious: Yes (Death, Other)
  Sender: FDA-Public Use
  Company Number: CA-JNJFOC-20210329764

PATIENT
  Age: 39 Year
  Sex: Male

DRUGS (2)
  1. ERYTHROMYCIN. [Suspect]
     Active Substance: ERYTHROMYCIN
     Indication: PHARYNGITIS STREPTOCOCCAL
     Route: 065
  2. REMICADE [Suspect]
     Active Substance: INFLIXIMAB
     Indication: CROHN^S DISEASE
     Dosage: FREQUENCY: CYCLICAL
     Route: 042

REACTIONS (2)
  - Pharyngitis streptococcal [Fatal]
  - Dermatitis allergic [Fatal]
